FAERS Safety Report 8490868-4 (Version None)
Quarter: 2012Q2

REPORT INFORMATION
  Report Type: 
  Country: None (occurrence: None)
  Receive Date: 20120629
  Receipt Date: 20120629
  Transmission Date: 20120825
  Serious: Yes (Other)
  Sender: FDA-Public Use
  Company Number: None

PATIENT
  Age: 85 Year
  Sex: Male
  Weight: 79.3795 kg

DRUGS (1)
  1. HYDROXYUREA [Suspect]
     Indication: THROMBOCYTOSIS
     Dosage: 500 MG 2X DAILY AM T TH SAT 1 PM ORAL
     Route: 048
     Dates: start: 20070101

REACTIONS (1)
  - BASOSQUAMOUS CARCINOMA [None]
